FAERS Safety Report 7020423-4 (Version None)
Quarter: 2010Q3

REPORT INFORMATION
  Report Type: 
  Country: None (occurrence: None)
  Receive Date: 20100929
  Receipt Date: 20100920
  Transmission Date: 20110219
  Serious: Yes (Other)
  Sender: FDA-Public Use
  Company Number: US-ASTRAZENECA-2010SE42034

PATIENT
  Age: 81 Year
  Sex: Female
  Weight: 64 kg

DRUGS (3)
  1. ATACAND HCT [Suspect]
     Dosage: 32/25 MG
     Route: 048
     Dates: start: 20100719, end: 20100826
  2. LIPITOR [Concomitant]
     Route: 048
  3. XALATAN [Concomitant]
     Route: 047

REACTIONS (1)
  - FACIAL PAIN [None]
